FAERS Safety Report 15023616 (Version 6)
Quarter: 2025Q3

REPORT INFORMATION
  Report Type: Spontaneous
  Country: EU (occurrence: EU)
  Receive Date: 20180618
  Receipt Date: 20250917
  Transmission Date: 20251020
  Serious: Yes (Hospitalization)
  Sender: MYLAN
  Company Number: EU-MYLANLABS-2018M1039966

PATIENT
  Age: 74 Year
  Sex: Female

DRUGS (11)
  1. PREGABALIN [Suspect]
     Active Substance: PREGABALIN
     Indication: Spinal pain
     Dosage: 75 MG, BID
  2. PREGABALIN [Suspect]
     Active Substance: PREGABALIN
     Indication: Back pain
     Dosage: 150 MG, BID
  3. CARBAMAZEPINE [Suspect]
     Active Substance: CARBAMAZEPINE
     Indication: Spinal pain
  4. CARBAMAZEPINE [Suspect]
     Active Substance: CARBAMAZEPINE
     Indication: Back pain
     Dosage: 200 MG, BID (0.5 DF (200 MG), BID)
  5. CARBAMAZEPINE [Suspect]
     Active Substance: CARBAMAZEPINE
     Dosage: 200 MILLIGRAM, QID
  6. CARBAMAZEPINE [Suspect]
     Active Substance: CARBAMAZEPINE
     Dosage: 200 MILLIGRAM, QD
  7. CARBAMAZEPINE [Suspect]
     Active Substance: CARBAMAZEPINE
     Dosage: 200 MILLIGRAM, QID
  8. ACYCLOVIR [Suspect]
     Active Substance: ACYCLOVIR
     Indication: Back pain
     Dosage: 750 MG, TID
  9. TRAMADOL [Suspect]
     Active Substance: TRAMADOL
     Indication: Spinal pain
  10. ACETAMINOPHEN [Suspect]
     Active Substance: ACETAMINOPHEN
     Indication: Spinal pain
  11. ACETAMINOPHEN [Suspect]
     Active Substance: ACETAMINOPHEN
     Indication: Back pain

REACTIONS (3)
  - Drug ineffective [Unknown]
  - Therapeutic response decreased [Unknown]
  - Pain [Recovering/Resolving]
